FAERS Safety Report 6858638-8 (Version None)
Quarter: 2010Q3

REPORT INFORMATION
  Report Type: 
  Country: None (occurrence: None)
  Receive Date: 20100719
  Receipt Date: 20080208
  Transmission Date: 20110219
  Serious: No
  Sender: FDA-Public Use
  Company Number: US-PFIZER INC-2008014317

PATIENT
  Age: 56 Year
  Sex: Male

DRUGS (7)
  1. CHANTIX [Suspect]
     Indication: SMOKING CESSATION THERAPY
     Dates: start: 20071101, end: 20071101
  2. LORTAB [Concomitant]
     Indication: PAIN
  3. VITAMIN D [Concomitant]
  4. FLUOCINONIDE [Concomitant]
  5. ZANAFLEX [Concomitant]
  6. NIACIN [Concomitant]
  7. ACETYLSALICYLIC ACID [Concomitant]

REACTIONS (4)
  - CONSTIPATION [None]
  - GINGIVAL PAIN [None]
  - PAIN IN JAW [None]
  - TOOTHACHE [None]
